FAERS Safety Report 16823182 (Version 1)
Quarter: 2019Q3

REPORT INFORMATION
  Report Type: Spontaneous
  Country: GB (occurrence: GB)
  Receive Date: 20190918
  Receipt Date: 20190918
  Transmission Date: 20191005
  Serious: Yes (Life-Threatening)
  Sender: FDA-Public Use
  Company Number: GB-FRESENIUS KABI-FK201910174

PATIENT
  Age: 11 Month
  Sex: Male

DRUGS (1)
  1. PAMIDRONATE (MANUFACTURER UNKNOWN) [Suspect]
     Active Substance: PAMIDRONATE DISODIUM
     Indication: OSTEOGENESIS IMPERFECTA
     Dosage: 5TH CYCLE
     Route: 065

REACTIONS (1)
  - Rhabdomyolysis [Recovered/Resolved]
